FAERS Safety Report 9001128 (Version 1)
Quarter: 2013Q1

REPORT INFORMATION
  Report Type: Spontaneous
  Country: US (occurrence: US)
  Receive Date: 20130107
  Receipt Date: 20130107
  Transmission Date: 20140127
  Serious: No
  Sender: FDA-Public Use
  Company Number: US-009507513-1301USA000574

PATIENT
  Sex: Female
  Weight: 65.76 kg

DRUGS (12)
  1. CLARITIN [Suspect]
     Route: 048
  2. SIMVASTATIN TABLETS, USP [Concomitant]
     Dosage: 20 MG, QD
     Route: 048
  3. OMEPRAZOLE [Concomitant]
     Dosage: 20 MG, BID
     Route: 048
  4. LEVOTHYROXINE SODIUM [Concomitant]
     Dosage: 88 MICROGRAM, QD
     Route: 048
  5. GLIPIZIDE [Concomitant]
     Dosage: 5 MG, QD
     Route: 048
  6. PROPRANOLOL HYDROCHLORIDE [Concomitant]
     Dosage: 60 MG, BID
     Route: 048
  7. ESTRACE [Concomitant]
     Dosage: 1 MG, QD
     Route: 048
  8. SLOW FE [Concomitant]
     Dosage: UNK, QD
     Route: 048
  9. METFORMIN [Concomitant]
     Dosage: 1000 MG, QD
     Route: 048
  10. CELEXA [Concomitant]
     Dosage: 1 TABLET, QD
     Route: 048
  11. VICODIN [Concomitant]
     Dosage: UNK, PRN
     Route: 048
  12. HYDROCHLOROTHIAZIDE [Concomitant]
     Dosage: 25 MG, QD
     Route: 048

REACTIONS (1)
  - Somnolence [Unknown]
